FAERS Safety Report 10168742 (Version 1)
Quarter: 2014Q2

REPORT INFORMATION
  Report Type: Spontaneous
  Country: JP (occurrence: None)
  Receive Date: 20140509
  Receipt Date: 20140509
  Transmission Date: 20141212
  Serious: No
  Sender: FDA-Public Use
  Company Number: B0990101A

PATIENT
  Age: 58 Year
  Sex: Male

DRUGS (5)
  1. DIAZEPAM [Suspect]
     Route: 048
     Dates: start: 20140430
  2. CHINESE MEDICATION [Concomitant]
  3. AZOSEMIDE [Concomitant]
  4. ALLOPURINOL [Concomitant]
  5. UNISIA [Concomitant]

REACTIONS (2)
  - Sudden onset of sleep [None]
  - Somnolence [None]
